FAERS Safety Report 4846034-4 (Version None)
Quarter: 2005Q4

REPORT INFORMATION
  Report Type: 
  Country: None (occurrence: None)
  Receive Date: 20051130
  Receipt Date: 20051117
  Transmission Date: 20060501
  Serious: Yes (Life-Threatening, Other)
  Sender: FDA-Public Use
  Company Number: 200514623BCC

PATIENT
  Age: 40 Year
  Sex: Female
  Weight: 59.8748 kg

DRUGS (3)
  1. ASPIRIN [Suspect]
     Indication: ARTHRALGIA
     Dosage: 81 MG, ONCE, ORAL
     Route: 048
     Dates: start: 19850101
  2. THYROID TAB [Concomitant]
  3. SEIZURE MEDICATION [Concomitant]

REACTIONS (2)
  - DYSPNOEA [None]
  - UNEVALUABLE EVENT [None]
